FAERS Safety Report 6766791-X (Version None)
Quarter: 2010Q2

REPORT INFORMATION
  Report Type: 
  Country: None (occurrence: None)
  Receive Date: 20100611
  Receipt Date: 20090804
  Transmission Date: 20101027
  Serious: Yes (Hospitalization)
  Sender: FDA-Public Use
  Company Number: FR-BAXTER-2009BH012563

PATIENT
  Age: 55 Year
  Sex: Female

DRUGS (1)
  1. SODIUM CHLORIDE 0.9% IN PLASTIC CONTAINER [Suspect]
     Indication: HAEMODIALYSIS
     Route: 042
     Dates: start: 20090803

REACTIONS (3)
  - CHEST PAIN [None]
  - COUGH [None]
  - MEDICATION ERROR [None]
